FAERS Safety Report 9735834 (Version 1)
Quarter: 2013Q4

REPORT INFORMATION
  Report Type: Spontaneous
  Country: US (occurrence: US)
  Receive Date: 20131206
  Receipt Date: 20131206
  Transmission Date: 20140711
  Serious: No
  Sender: FDA-Public Use
  Company Number: US-GILEAD-2009-0024066

PATIENT
  Age: 54 Year
  Sex: Female
  Weight: 57.15 kg

DRUGS (10)
  1. LETAIRIS [Suspect]
     Indication: CHRONIC OBSTRUCTIVE PULMONARY DISEASE
     Route: 048
     Dates: start: 20071110, end: 20090901
  2. NIFEDIPINE ER [Concomitant]
  3. HYDROCHLOROTHIAZIDE [Concomitant]
  4. DOXYCYCLINE [Concomitant]
  5. AMOXICILLIN [Concomitant]
  6. AZITHROMYCIN [Concomitant]
  7. METHOTREXATE [Concomitant]
  8. PREDNISONE [Concomitant]
  9. HYDROXYCHLOROQUINE [Concomitant]
  10. FOLIC ACID [Concomitant]

REACTIONS (1)
  - Hepatic enzyme increased [Unknown]
